FAERS Safety Report 5567807-9 (Version None)
Quarter: 2007Q4

REPORT INFORMATION
  Report Type: 
  Country: None (occurrence: None)
  Receive Date: 20071219
  Receipt Date: 20071218
  Transmission Date: 20080405
  Serious: Yes (Other)
  Sender: FDA-Public Use
  Company Number: JP-ALLERGAN-0713958US

PATIENT

DRUGS (5)
  1. ALESION SYRUP [Suspect]
     Indication: DRUG USE FOR UNKNOWN INDICATION
     Dosage: 10 MG, QD
     Route: 048
  2. DORMICUM [Suspect]
     Indication: DRUG USE FOR UNKNOWN INDICATION
  3. SELENICA-R [Concomitant]
     Dosage: 600 MG, UNK
     Route: 048
  4. MINOMYCIN [Concomitant]
     Route: 042
  5. DEPAKENE [Concomitant]
     Route: 048

REACTIONS (1)
  - RESPIRATORY DEPRESSION [None]
